FAERS Safety Report 10157283 (Version 2)
Quarter: 2014Q2

REPORT INFORMATION
  Report Type: Spontaneous
  Country: US (occurrence: US)
  Receive Date: 20140507
  Receipt Date: 20140507
  Transmission Date: 20141212
  Serious: Yes (Hospitalization, Disabling)
  Sender: FDA-Public Use
  Company Number: US-009507513-1102USA00040

PATIENT
  Age: 27 Year
  Sex: Male

DRUGS (2)
  1. PROPECIA [Suspect]
     Indication: ALOPECIA
     Dosage: 1 MG, QD
     Route: 048
     Dates: start: 201009, end: 20101227
  2. PROPECIA [Suspect]
     Indication: ANDROGENETIC ALOPECIA

REACTIONS (18)
  - Depression [Not Recovered/Not Resolved]
  - Feeling abnormal [Not Recovered/Not Resolved]
  - Loss of libido [Not Recovered/Not Resolved]
  - Erectile dysfunction [Not Recovered/Not Resolved]
  - Fatigue [Not Recovered/Not Resolved]
  - Insomnia [Not Recovered/Not Resolved]
  - Arthralgia [Not Recovered/Not Resolved]
  - Ejaculation disorder [Not Recovered/Not Resolved]
  - Apathy [Not Recovered/Not Resolved]
  - Sexual dysfunction [Not Recovered/Not Resolved]
  - Anxiety [Recovering/Resolving]
  - Suicidal ideation [Unknown]
  - Malaise [Unknown]
  - Stress [Unknown]
  - Adverse drug reaction [Unknown]
  - Sperm concentration decreased [Unknown]
  - Tremor [Unknown]
  - Disability [Unknown]
